FAERS Safety Report 12853356 (Version 1)
Quarter: 2016Q4

REPORT INFORMATION
  Report Type: Spontaneous
  Country: JP (occurrence: JP)
  Receive Date: 20161017
  Receipt Date: 20161017
  Transmission Date: 20170207
  Serious: Yes (Death)
  Sender: FDA-Public Use
  Company Number: JP-PFIZER INC-2016405285

PATIENT
  Age: 74 Year
  Sex: Female

DRUGS (3)
  1. CABERGOLINE. [Suspect]
     Active Substance: CABERGOLINE
     Dosage: 2 MG, WEEKLY
     Route: 048
     Dates: start: 201607
  2. SANDOSTATIN LAR DEPOT [Suspect]
     Active Substance: OCTREOTIDE ACETATE
     Dosage: 20 MG, MONTHLY
     Route: 030
     Dates: start: 201607
  3. SOMAVERT [Suspect]
     Active Substance: PEGVISOMANT
     Dosage: 10 MG, DAILY
     Route: 058
     Dates: start: 20160708, end: 20160723

REACTIONS (2)
  - Insulin-like growth factor decreased [Recovered/Resolved]
  - Brain neoplasm [Fatal]

NARRATIVE: CASE EVENT DATE: 20160723
